FAERS Safety Report 9316728 (Version 1)
Quarter: 2013Q2

REPORT INFORMATION
  Report Type: Spontaneous
  Country: US (occurrence: None)
  Receive Date: 20130528
  Receipt Date: 20130528
  Transmission Date: 20140414
  Serious: Yes (Hospitalization)
  Sender: FDA-Public Use
  Company Number: None

PATIENT
  Age: 78 Year
  Sex: Female

DRUGS (1)
  1. XARELTO 20 MG JANSSEN [Suspect]
     Indication: DEEP VEIN THROMBOSIS
     Dosage: 1 DOSE ONLY
     Route: 048
     Dates: start: 20130404, end: 20130404

REACTIONS (4)
  - Gastrooesophageal reflux disease [None]
  - Haemoglobin decreased [None]
  - Haematocrit decreased [None]
  - Upper gastrointestinal haemorrhage [None]
